FAERS Safety Report 20411162 (Version 3)
Quarter: 2022Q2

REPORT INFORMATION
  Report Type: Spontaneous
  Country: CA (occurrence: CA)
  Receive Date: 20220201
  Receipt Date: 20220601
  Transmission Date: 20220721
  Serious: Yes (Other)
  Sender: FDA-Public Use
  Company Number: CA-AMERICAN REGENT INC-2022000136

PATIENT
  Age: 28 Year
  Sex: Female

DRUGS (3)
  1. VENOFER [Suspect]
     Active Substance: IRON SUCROSE
     Indication: Iron deficiency anaemia
     Dosage: 300 MILLIGRAM MIXED IN 250 ML NS
     Route: 042
     Dates: start: 20211218, end: 20211218
  2. VENOFER [Suspect]
     Active Substance: IRON SUCROSE
     Indication: Iron deficiency
  3. VENOFER [Suspect]
     Active Substance: IRON SUCROSE
     Indication: Pregnancy

REACTIONS (4)
  - Maternal exposure during pregnancy [Unknown]
  - Hypersensitivity [Recovered/Resolved]
  - Incorrect product administration duration [Unknown]
  - Product quality issue [Unknown]

NARRATIVE: CASE EVENT DATE: 20211218
